FAERS Safety Report 9975902 (Version 1)
Quarter: 2014Q1

REPORT INFORMATION
  Report Type: Spontaneous
  Country: US (occurrence: US)
  Receive Date: 20140306
  Receipt Date: 20140306
  Transmission Date: 20141002
  Serious: No
  Sender: FDA-Public Use
  Company Number: US-PFIZER INC-2014060281

PATIENT
  Age: 7 Decade
  Sex: Female

DRUGS (2)
  1. LIPITOR [Suspect]
     Indication: BLOOD CHOLESTEROL INCREASED
     Dosage: UNK
  2. PREMARIN [Suspect]
     Dosage: UNK

REACTIONS (4)
  - Dizziness [Unknown]
  - Sensory disturbance [Unknown]
  - Tongue dry [Unknown]
  - Wrong technique in drug usage process [Unknown]
